FAERS Safety Report 9797123 (Version 2)
Quarter: 2014Q1

REPORT INFORMATION
  Report Type: Report from Study
  Country: US (occurrence: US)
  Receive Date: 20140106
  Receipt Date: 20140106
  Transmission Date: 20141002
  Serious: No
  Sender: FDA-Public Use
  Company Number: PHEH2013US022281

PATIENT
  Age: 70 Year
  Sex: Female

DRUGS (9)
  1. TASIGNA [Suspect]
     Indication: GASTROINTESTINAL STROMAL TUMOUR
     Dosage: 400 MG, BID
     Route: 048
     Dates: start: 20130920, end: 20130925
  2. TASIGNA [Suspect]
     Indication: OFF LABEL USE
  3. ATIVAN [Concomitant]
  4. LEVOTHYROXINE [Concomitant]
  5. OMEPRAZOLE [Concomitant]
  6. PREDNISONE [Concomitant]
  7. PREMARIN [Concomitant]
  8. SIMVASTATIN [Concomitant]
  9. TRIAMTERENE AND HYDROCHLOROTHIAZID [Concomitant]

REACTIONS (3)
  - Rash [Recovered/Resolved]
  - Urticaria [Recovered/Resolved]
  - Swelling [Recovered/Resolved]
